FAERS Safety Report 7501943-2 (Version None)
Quarter: 2011Q2

REPORT INFORMATION
  Report Type: 
  Country: None (occurrence: None)
  Receive Date: 20110523
  Receipt Date: 20110523
  Transmission Date: 20111010
  Serious: No
  Sender: FDA-Public Use
  Company Number: None

PATIENT
  Age: 81 Year
  Sex: Female
  Weight: 65.7716 kg

DRUGS (1)
  1. NORVASC [Suspect]
     Indication: RAYNAUD'S PHENOMENON
     Dosage: ONE 2.5 MG TAB 1 DAILY MOUTH
     Route: 048
     Dates: start: 20110228, end: 20110512

REACTIONS (3)
  - MIDDLE INSOMNIA [None]
  - TREMOR [None]
  - MUSCLE SPASMS [None]
